FAERS Safety Report 6804681-4 (Version None)
Quarter: 2010Q2

REPORT INFORMATION
  Report Type: 
  Country: None (occurrence: None)
  Receive Date: 20100628
  Receipt Date: 20070521
  Transmission Date: 20101027
  Serious: Yes (Other)
  Sender: FDA-Public Use
  Company Number: US-PFIZER INC-2007025570

PATIENT
  Sex: Male
  Weight: 65.3 kg

DRUGS (6)
  1. NORVASC [Suspect]
  2. SUTENT [Suspect]
     Indication: RENAL CELL CARCINOMA
     Dosage: QD: EVERYDAY
     Route: 048
     Dates: start: 20070301, end: 20070101
  3. ATENOLOL [Concomitant]
  4. LISINOPRIL [Concomitant]
  5. ATIVAN [Concomitant]
  6. LIPITOR [Concomitant]

REACTIONS (2)
  - BLOOD CREATININE INCREASED [None]
  - BLOOD PRESSURE INCREASED [None]
